FAERS Safety Report 18987340 (Version 1)
Quarter: 2021Q1

REPORT INFORMATION
  Report Type: Report from Study
  Country: US (occurrence: US)
  Receive Date: 20210309
  Receipt Date: 20210309
  Transmission Date: 20210420
  Serious: Yes (Hospitalization)
  Sender: FDA-Public Use
  Company Number: US-ROCHE-2778128

PATIENT
  Age: 73 Year
  Sex: Female
  Weight: 56.18 kg

DRUGS (4)
  1. ATEZOLIZUMAB. [Suspect]
     Active Substance: ATEZOLIZUMAB
     Indication: COLON CANCER
     Dosage: DATE OF MOST RECENT DOSE (840 MG) OF ATEZOLIZUMAB PRIOR TO SERIOUS ADVERSE EVENTS (SAE): 25/NOV/2019
     Route: 041
     Dates: start: 20191015, end: 20191125
  2. OXALIPLATIN. [Suspect]
     Active Substance: OXALIPLATIN
     Indication: COLON CANCER
     Dosage: DATE OF MOST RECENT DOSE (128 MG) OF OXALIPLATIN PRIOR TO SAE: 12/NOV/2019
     Route: 042
     Dates: start: 20191015
  3. LEUCOVORIN CALCIUM. [Suspect]
     Active Substance: LEUCOVORIN CALCIUM
     Indication: COLON CANCER
     Dosage: DATE OF MOST RECENT DOSE (604 MG) OF LEUCOVORIN CALCIUM PRIOR TO SAE: 12/NOV/2019
     Route: 042
     Dates: start: 20191015
  4. 5?FLUOROURACIL [Suspect]
     Active Substance: FLUOROURACIL
     Indication: COLON CANCER
     Dosage: 400MG/M2 IV (BOLUS) ON DAY 1 FOLLOWED BY 2400MG/M2 IV OVER 46 HOURS DAYS 1?3?DATE OF MOST RECENT DOS
     Route: 040
     Dates: start: 20191015

REACTIONS (4)
  - Confusional state [Recovering/Resolving]
  - Diarrhoea [Recovering/Resolving]
  - Encephalopathy [Recovered/Resolved]
  - Delirium [Recovered/Resolved]

NARRATIVE: CASE EVENT DATE: 20191203
